FAERS Safety Report 24900352 (Version 1)
Quarter: 2025Q1

REPORT INFORMATION
  Report Type: Spontaneous
  Country: US (occurrence: None)
  Receive Date: 20250129
  Receipt Date: 20250129
  Transmission Date: 20250409
  Serious: Yes (Death)
  Sender: FDA-CTU
  Company Number: None

PATIENT
  Age: 22 Year
  Sex: Male

DRUGS (2)
  1. ESTRADIOL [Suspect]
     Active Substance: ESTRADIOL
     Route: 061
  2. BICALUTAMIDE [Suspect]
     Active Substance: BICALUTAMIDE

REACTIONS (4)
  - Self-medication [None]
  - Product use in unapproved indication [None]
  - Drug abuse [None]
  - Completed suicide [None]
